FAERS Safety Report 10302233 (Version 2)
Quarter: 2014Q3

REPORT INFORMATION
  Report Type: Report from Study
  Country: JP (occurrence: JP)
  Receive Date: 20140714
  Receipt Date: 20140714
  Transmission Date: 20150326
  Serious: Yes (Life-Threatening)
  Sender: FDA-Public Use
  Company Number: JP-SA-2014SA014810

PATIENT
  Age: 33 Year
  Sex: Male
  Weight: 79 kg

DRUGS (15)
  1. MOHRUS [Concomitant]
     Active Substance: KETOPROFEN
     Indication: PROPHYLAXIS
  2. ZOSYN [Concomitant]
     Active Substance: PIPERACILLIN SODIUM\TAZOBACTAM SODIUM
     Indication: INFECTION PROPHYLAXIS
     Dates: start: 20130311, end: 20130325
  3. THYMOGLOBULINE [Suspect]
     Active Substance: LAPINE T-LYMPHOCYTE IMMUNE GLOBULIN
     Indication: BONE MARROW CONDITIONING REGIMEN
     Route: 042
     Dates: start: 20130304, end: 20130305
  4. VFEND [Concomitant]
     Active Substance: VORICONAZOLE
     Indication: INFECTION PROPHYLAXIS
  5. PROGRAF [Suspect]
     Active Substance: TACROLIMUS\TACROLIMUS ANHYDROUS
     Indication: PROPHYLAXIS AGAINST GRAFT VERSUS HOST DISEASE
     Route: 065
     Dates: end: 20130804
  6. VFEND [Concomitant]
     Active Substance: VORICONAZOLE
     Indication: SYSTEMIC CANDIDA
  7. CALONAL [Concomitant]
     Active Substance: ACETAMINOPHEN
     Indication: SYSTEMIC CANDIDA
     Dates: end: 201308
  8. ENDOXAN [Concomitant]
     Active Substance: CYCLOPHOSPHAMIDE
     Indication: PROPHYLAXIS AGAINST GRAFT VERSUS HOST DISEASE
     Dates: start: 20130315, end: 20130316
  9. BAKTAR [Suspect]
     Active Substance: SULFAMETHOXAZOLE\TRIMETHOPRIM
     Indication: INFECTION PROPHYLAXIS
     Route: 065
     Dates: end: 20130409
  10. CELLCEPT [Concomitant]
     Active Substance: MYCOPHENOLATE MOFETIL\MYCOPHENOLATE MOFETIL HYDROCHLORIDE
     Indication: PROPHYLAXIS AGAINST GRAFT VERSUS HOST DISEASE
     Route: 048
     Dates: start: 20130317, end: 20130422
  11. ZOVIRAX [Concomitant]
     Active Substance: ACYCLOVIR
     Indication: INFECTION PROPHYLAXIS
  12. MAXIPIME [Concomitant]
     Active Substance: CEFEPIME HYDROCHLORIDE
     Indication: INFECTION PROPHYLAXIS
     Dates: end: 20130501
  13. URSO [Concomitant]
     Active Substance: URSODIOL
     Indication: PROPHYLAXIS
  14. CALONAL [Concomitant]
     Active Substance: ACETAMINOPHEN
     Indication: PYREXIA
     Dates: end: 201308
  15. BENAMBAX [Concomitant]
     Active Substance: PENTAMIDINE
     Indication: INFECTION PROPHYLAXIS
     Route: 042
     Dates: start: 20130411, end: 20130516

REACTIONS (9)
  - Acute myeloid leukaemia recurrent [Recovered/Resolved]
  - Trigger finger [Recovering/Resolving]
  - Osteoarthritis [Recovering/Resolving]
  - Osteoarthritis [Recovering/Resolving]
  - Hyperkalaemia [Recovering/Resolving]
  - Acute graft versus host disease in skin [Recovering/Resolving]
  - Sepsis [Recovering/Resolving]
  - Pyrexia [Recovered/Resolved]
  - Febrile neutropenia [Recovered/Resolved]

NARRATIVE: CASE EVENT DATE: 20130305
